FAERS Safety Report 8314879-4 (Version None)
Quarter: 2012Q2

REPORT INFORMATION
  Report Type: 
  Country: None (occurrence: None)
  Receive Date: 20120426
  Receipt Date: 20090212
  Transmission Date: 20120825
  Serious: Yes (Hospitalization)
  Sender: FDA-Public Use
  Company Number: US-TEVA-US025462

PATIENT
  Sex: Female
  Weight: 59 kg

DRUGS (20)
  1. LAMICTAL [Concomitant]
     Indication: BIPOLAR DISORDER
     Dosage: 800 MILLIGRAM;
     Route: 048
     Dates: start: 20070101
  2. CYMBALTA [Concomitant]
     Indication: BIPOLAR DISORDER
     Dosage: 60 MILLIGRAM;
     Route: 048
     Dates: start: 20050101
  3. STRATTERA [Concomitant]
     Indication: ATTENTION DEFICIT/HYPERACTIVITY DISORDER
     Dosage: 80 MILLIGRAM;
     Route: 048
     Dates: start: 20080201
  4. FORADIL [Concomitant]
     Indication: CHRONIC OBSTRUCTIVE PULMONARY DISEASE
     Route: 065
     Dates: start: 20080201
  5. IRON SUPPLEMENT [Concomitant]
     Indication: ANAEMIA
     Dosage: ONE TABLET DAILY
     Route: 048
     Dates: start: 20060101
  6. ETODOLAC [Concomitant]
     Indication: ARTHRITIS
     Dosage: ONE TABLET TWICE DAILY
     Route: 048
     Dates: start: 20040101
  7. OMEPRAZOLE [Concomitant]
     Indication: ABDOMINAL DISCOMFORT
     Dosage: 40 MILLIGRAM;
     Route: 048
  8. BUMEX [Concomitant]
     Indication: SWELLING
     Dosage: 2 MILLIGRAM;
     Route: 048
     Dates: start: 19940101
  9. PRODAY (ALBUTEROL) [Concomitant]
     Indication: CHRONIC OBSTRUCTIVE PULMONARY DISEASE
     Route: 065
     Dates: start: 20070101
  10. ALDACTONE [Concomitant]
     Indication: SWELLING
     Dosage: 200 MILLIGRAM;
     Route: 048
     Dates: start: 20040101
  11. PROVIGIL [Suspect]
     Indication: NARCOLEPSY
     Dosage: 600 MILLIGRAM; 2 TABLETS EVERY MORNING, 1 TABLET AT NOON
     Route: 048
     Dates: start: 20050101
  12. TOPAMAX [Concomitant]
     Indication: BIPOLAR DISORDER
     Dosage: 500 MILLIGRAM;
     Route: 048
     Dates: start: 20040101
  13. TOPAMAX [Concomitant]
     Indication: CONVULSION
  14. CYMBALTA [Concomitant]
     Indication: CONVULSION
  15. SUBOXONE [Concomitant]
     Indication: DEPENDENCE
     Dosage: 8MG/2MG DAILY
     Route: 048
     Dates: start: 20060101
  16. AMITIZA [Concomitant]
     Indication: CONSTIPATION
     Dosage: 48 MICROGRAM;
  17. PROVIGIL [Suspect]
     Dosage: 200 MILLIGRAM;
     Route: 048
  18. SPIRIVA [Concomitant]
     Indication: CHRONIC OBSTRUCTIVE PULMONARY DISEASE
     Route: 065
     Dates: start: 20080201
  19. LAMICTAL [Concomitant]
     Indication: CONVULSION
  20. POTASSIUM CHLORIDE [Concomitant]
     Indication: MINERAL SUPPLEMENTATION
     Dosage: 80 MILLIEQUIVALENTS;
     Route: 048

REACTIONS (2)
  - ABDOMINAL PAIN [None]
  - DRUG INEFFECTIVE [None]
